FAERS Safety Report 7561394-1 (Version None)
Quarter: 2011Q2

REPORT INFORMATION
  Report Type: 
  Country: None (occurrence: None)
  Receive Date: 20110621
  Receipt Date: 20110128
  Transmission Date: 20111010
  Serious: No
  Sender: FDA-Public Use
  Company Number: US-ASTRAZENECA-2011SE05153

PATIENT
  Age: 54 Year
  Sex: Female
  Weight: 70.5 kg

DRUGS (5)
  1. XOPENEX [Suspect]
     Dosage: 0.63 MG/3 ML,Q4H
     Route: 055
     Dates: start: 20070101, end: 20100101
  2. XOPENEX [Suspect]
     Dosage: 0.63 MG/3 ML,Q4H
     Route: 055
     Dates: start: 20100101
  3. PULMICORT [Suspect]
     Route: 055
  4. XOPENEX [Suspect]
     Dosage: 0.63 MG/3 ML, AS REQUIRED
     Route: 055
     Dates: start: 20100101
  5. XOPENEX [Suspect]
     Indication: ASTHMA
     Dosage: 0.63 MG/3 ML, AS REQUIRED
     Route: 055
     Dates: start: 20070101, end: 20100101

REACTIONS (2)
  - INTRAOCULAR PRESSURE INCREASED [None]
  - ASTHMA [None]
